FAERS Safety Report 20659703 (Version 1)
Quarter: 2022Q1

REPORT INFORMATION
  Report Type: Spontaneous
  Country: US (occurrence: US)
  Receive Date: 20220331
  Receipt Date: 20220331
  Transmission Date: 20220423
  Serious: No
  Sender: FDA-Public Use
  Company Number: US-PFIZER INC-2021814770

PATIENT
  Age: 49 Year
  Sex: Female

DRUGS (1)
  1. IBRANCE [Suspect]
     Active Substance: PALBOCICLIB
     Dosage: 125 MG
     Dates: start: 20210506

REACTIONS (5)
  - Vomiting [Unknown]
  - Dysphagia [Unknown]
  - Chest pain [Unknown]
  - Bone pain [Unknown]
  - Musculoskeletal stiffness [Unknown]
